FAERS Safety Report 5222867-X (Version None)
Quarter: 2007Q1

REPORT INFORMATION
  Report Type: 
  Country: None (occurrence: None)
  Receive Date: 20070129
  Receipt Date: 20061031
  Transmission Date: 20070707
  Serious: No
  Sender: FDA-Public Use
  Company Number: US-GLAXOSMITHKLINE-A0625583A

PATIENT
  Age: 44 Year
  Sex: Male

DRUGS (8)
  1. LEXIVA [Suspect]
     Indication: HIV INFECTION
     Dosage: 700MG TWICE PER DAY
     Route: 048
     Dates: start: 20031001
  2. EMTRIVA [Concomitant]
  3. SUSTIVA [Concomitant]
  4. LISINOPRIL [Concomitant]
  5. ZANTAC [Concomitant]
  6. HUMALOG [Concomitant]
  7. LANTUS [Concomitant]
  8. GRAPEFRUIT JUICE [Concomitant]

REACTIONS (6)
  - BLOOD GLUCOSE INCREASED [None]
  - FEELING COLD [None]
  - FEELING HOT AND COLD [None]
  - INFLUENZA LIKE ILLNESS [None]
  - PERIPHERAL COLDNESS [None]
  - PYREXIA [None]
